FAERS Safety Report 23508204 (Version 1)
Quarter: 2024Q1

REPORT INFORMATION
  Report Type: Spontaneous
  Country: SE (occurrence: None)
  Receive Date: 20240209
  Receipt Date: 20240209
  Transmission Date: 20240410
  Serious: Yes (Disabling)
  Sender: FDA-Public Use
  Company Number: 2024A030853

PATIENT
  Sex: Male

DRUGS (1)
  1. BUDESONIDE\FORMOTEROL\GLYCOPYRRONIUM [Suspect]
     Active Substance: BUDESONIDE\FORMOTEROL\GLYCOPYRRONIUM
     Indication: Pneumoconiosis
     Route: 055
     Dates: start: 202311, end: 202401

REACTIONS (1)
  - Aphonia [Recovered/Resolved]

NARRATIVE: CASE EVENT DATE: 20240101
